FAERS Safety Report 6528559-9 (Version None)
Quarter: 2010Q1

REPORT INFORMATION
  Report Type: 
  Country: None (occurrence: None)
  Receive Date: 20100106
  Receipt Date: 20091231
  Transmission Date: 20100710
  Serious: Yes (Other)
  Sender: FDA-Public Use
  Company Number: US-AMGEN-US375728

PATIENT
  Sex: Male
  Weight: 69.5 kg

DRUGS (1)
  1. NPLATE [Suspect]
     Indication: IDIOPATHIC THROMBOCYTOPENIC PURPURA
     Route: 058
     Dates: start: 20091113, end: 20091209

REACTIONS (3)
  - DRUG INEFFECTIVE [None]
  - HAEMOGLOBIN DECREASED [None]
  - HAEMOLYSIS [None]
